FAERS Safety Report 6126265-6 (Version None)
Quarter: 2009Q1

REPORT INFORMATION
  Report Type: 
  Country: None (occurrence: None)
  Receive Date: 20090320
  Receipt Date: 20090311
  Transmission Date: 20090719
  Serious: Yes (Hospitalization, Other)
  Sender: FDA-Public Use
  Company Number: PHHY2009GB08903

PATIENT
  Age: 56 Year
  Sex: Male
  Weight: 89 kg

DRUGS (5)
  1. DICLOFENAC [Suspect]
     Indication: ANALGESIA
     Dosage: 100MG PER DAY
     Route: 054
     Dates: start: 20090203, end: 20090207
  2. RIVAROXABAN [Suspect]
     Indication: THROMBOSIS PROPHYLAXIS
     Dosage: 10 MG, QD
     Route: 048
     Dates: start: 20090203, end: 20090209
  3. BENDROFLUMETHIAZIDE [Concomitant]
  4. GLUCOSAMINE HYDROCHLORIDE [Concomitant]
  5. HORMONE REPLACEMENT THERAPY [Concomitant]

REACTIONS (3)
  - HYPERCOAGULATION [None]
  - PLATELET COUNT INCREASED [None]
  - WOUND SECRETION [None]
